FAERS Safety Report 8259924-X (Version None)
Quarter: 2012Q2

REPORT INFORMATION
  Report Type: 
  Country: None (occurrence: None)
  Receive Date: 20120404
  Receipt Date: 20120330
  Transmission Date: 20120825
  Serious: No
  Sender: FDA-Public Use
  Company Number: US-PFIZER INC-2012032876

PATIENT
  Sex: Female

DRUGS (3)
  1. LIPITOR [Suspect]
     Dosage: UNK
     Dates: end: 20101101
  2. SIMVASTATIN [Suspect]
     Dosage: UNK
     Dates: start: 20101101
  3. ATORVASTATIN CALCIUM [Suspect]
     Dosage: UNK
     Dates: start: 20111201

REACTIONS (3)
  - FEELING HOT [None]
  - FLUSHING [None]
  - DRUG DISPENSING ERROR [None]
